FAERS Safety Report 6912660-1 (Version None)
Quarter: 2010Q3

REPORT INFORMATION
  Report Type: 
  Country: None (occurrence: None)
  Receive Date: 20100806
  Receipt Date: 20080916
  Transmission Date: 20110219
  Serious: No
  Sender: FDA-Public Use
  Company Number: US-PFIZER INC-2006028176

PATIENT
  Sex: Female
  Weight: 112.49 kg

DRUGS (3)
  1. DETROL LA [Suspect]
     Indication: HYPERTONIC BLADDER
     Route: 065
  2. LIPITOR [Concomitant]
     Route: 065
  3. EFFEXOR [Concomitant]
     Route: 065

REACTIONS (3)
  - MEDICATION ERROR [None]
  - NOCTURIA [None]
  - URINARY INCONTINENCE [None]
